FAERS Safety Report 11566081 (Version 1)
Quarter: 2015Q3

REPORT INFORMATION
  Report Type: Spontaneous
  Country: US (occurrence: US)
  Receive Date: 20150916
  Receipt Date: 20150916
  Transmission Date: 20151125
  Serious: No
  Sender: FDA-Public Use
  Company Number: US-ELI_LILLY_AND_COMPANY-US200905004527

PATIENT
  Sex: Female

DRUGS (11)
  1. FORTEO [Suspect]
     Active Substance: TERIPARATIDE
  2. CARTIA XT [Concomitant]
     Active Substance: DILTIAZEM HYDROCHLORIDE
     Dosage: 180 MG, UNK
  3. VITAMIN B6 [Concomitant]
     Active Substance: PYRIDOXINE HYDROCHLORIDE
     Dosage: 100 MG, UNK
  4. FISH OIL [Concomitant]
     Active Substance: FISH OIL
     Dosage: UNK, UNK
  5. POSTURE D [Concomitant]
     Dosage: 600 MG, UNK
  6. METOPROLOL TARTRATE. [Concomitant]
     Active Substance: METOPROLOL TARTRATE
     Dosage: 25 MG, UNK
  7. ALPRAZOLAM. [Concomitant]
     Active Substance: ALPRAZOLAM
     Dosage: 0.25 MG, UNK
  8. PRAVASTATIN SODIUM. [Concomitant]
     Active Substance: PRAVASTATIN SODIUM
     Dosage: 20 MG, UNK
  9. VITAMIN B12 [Concomitant]
     Active Substance: CYANOCOBALAMIN
     Dosage: 500 UG, UNK
  10. FORTEO [Suspect]
     Active Substance: TERIPARATIDE
     Dosage: UNK, UNKNOWN
  11. ECOTRIN [Concomitant]
     Active Substance: ASPIRIN
     Dosage: 81 MG, UNK

REACTIONS (2)
  - Ovarian cyst [Not Recovered/Not Resolved]
  - Cataract [Not Recovered/Not Resolved]

NARRATIVE: CASE EVENT DATE: 2009
